FAERS Safety Report 8425974-3 (Version None)
Quarter: 2012Q2

REPORT INFORMATION
  Report Type: 
  Country: None (occurrence: None)
  Receive Date: 20120601
  Receipt Date: 20120518
  Transmission Date: 20120825
  Serious: Yes (Hospitalization)
  Sender: FDA-Public Use
  Company Number: 2012SP027672

PATIENT
  Sex: Male
  Weight: 2.268 kg

DRUGS (2)
  1. RIBAVIRIN [Suspect]
     Indication: PREGNANCY
     Dosage: TRPL
     Route: 064
  2. VIRAFERONPEG [Suspect]
     Indication: PREGNANCY
     Dosage: TRPL
     Route: 064

REACTIONS (2)
  - PATERNAL DRUGS AFFECTING FOETUS [None]
  - APGAR SCORE LOW [None]
